FAERS Safety Report 5616510-5 (Version None)
Quarter: 2008Q1

REPORT INFORMATION
  Report Type: 
  Country: None (occurrence: None)
  Receive Date: 20080207
  Receipt Date: 20080123
  Transmission Date: 20080703
  Serious: Yes (Other)
  Sender: FDA-Public Use
  Company Number: GB-BRISTOL-MYERS SQUIBB COMPANY-13928734

PATIENT
  Age: 54 Year
  Sex: Male

DRUGS (4)
  1. CO-CARELDOPA [Suspect]
     Dosage: FORMULATION = STRENGTH
  2. CABERGOLINE [Suspect]
  3. ENTACAPONE [Suspect]
  4. TADALAFIL [Concomitant]

REACTIONS (1)
  - PATHOLOGICAL GAMBLING [None]
